FAERS Safety Report 8942643 (Version 1)
Quarter: 2012Q4

REPORT INFORMATION
  Report Type: 
  Country: BR (occurrence: BR)
  Receive Date: 20121204
  Receipt Date: 20121204
  Transmission Date: 20130627
  Serious: Yes (Disabling, Other)
  Sender: FDA-Public Use
  Company Number: BR-BAYER-2012-124359

PATIENT
  Age: 67 Year
  Sex: Female
  Weight: 50 kg

DRUGS (4)
  1. NEXAVAR [Suspect]
     Indication: LIVER TUMOR
     Dosage: 400 mg, BID
     Route: 048
     Dates: start: 201211, end: 20121125
  2. NEXAVAR [Suspect]
     Indication: LIVER TUMOR
     Dosage: UNK
  3. PROPRANOLOL [Concomitant]
     Indication: SURGERY
     Dosage: 0.5 DF, QD
     Route: 048
     Dates: start: 201211
  4. PROPRANOLOL [Concomitant]
     Indication: VARICOSE VEINS

REACTIONS (10)
  - Dysentery [Not Recovered/Not Resolved]
  - Malaise [Not Recovered/Not Resolved]
  - Movement disorder [Not Recovered/Not Resolved]
  - Back pain [Not Recovered/Not Resolved]
  - Decreased appetite [Recovering/Resolving]
  - Ageusia [Recovering/Resolving]
  - Weight decreased [Not Recovered/Not Resolved]
  - Pyrexia [Not Recovered/Not Resolved]
  - Hepatic pain [Not Recovered/Not Resolved]
  - Headache [Not Recovered/Not Resolved]
